FAERS Safety Report 5942162-0 (Version None)
Quarter: 2008Q4

REPORT INFORMATION
  Report Type: 
  Country: None (occurrence: None)
  Receive Date: 20081104
  Receipt Date: 20081104
  Transmission Date: 20090506
  Serious: Yes (Other)
  Sender: FDA-Public Use
  Company Number: None

PATIENT
  Age: 62 Year
  Sex: Male
  Weight: 78.4 kg

DRUGS (1)
  1. VARENICLINE [Suspect]
     Dosage: 1 MG EVERYDAY PO
     Route: 048
     Dates: start: 20070717, end: 20071012

REACTIONS (1)
  - DIARRHOEA [None]
